FAERS Safety Report 21164671 (Version 3)
Quarter: 2022Q4

REPORT INFORMATION
  Report Type: Spontaneous
  Country: US (occurrence: None)
  Receive Date: 20220803
  Receipt Date: 20221011
  Transmission Date: 20230113
  Serious: Yes (Hospitalization, Other)
  Sender: FDA-Public Use
  Company Number: US-Unichem Pharmaceuticals (USA) Inc-UCM202207-000716

PATIENT
  Age: 61 Year
  Sex: Female
  Weight: 61.68 kg

DRUGS (3)
  1. MELOXICAM [Suspect]
     Active Substance: MELOXICAM
     Indication: Inflammation
     Dates: start: 20220324, end: 20220513
  2. MELOXICAM [Suspect]
     Active Substance: MELOXICAM
     Indication: Arthritis
  3. MONTELUKAST [Concomitant]
     Active Substance: MONTELUKAST SODIUM
     Indication: Product used for unknown indication

REACTIONS (9)
  - Near death experience [Unknown]
  - Bedridden [Unknown]
  - Abscess [Unknown]
  - Perforated ulcer [Unknown]
  - Haematemesis [Unknown]
  - Abdominal discomfort [Unknown]
  - Economic problem [Unknown]
  - Constipation [Unknown]
  - Weight decreased [Unknown]

NARRATIVE: CASE EVENT DATE: 20220518
